FAERS Safety Report 24925895 (Version 1)
Quarter: 2025Q1

REPORT INFORMATION
  Report Type: Spontaneous
  Country: US (occurrence: US)
  Receive Date: 20250205
  Receipt Date: 20250205
  Transmission Date: 20250409
  Serious: Yes (Other)
  Sender: DR REDDYS
  Company Number: US-DRL-USA-USA/2025/01/001538

PATIENT

DRUGS (2)
  1. DOFETILIDE [Suspect]
     Active Substance: DOFETILIDE
     Indication: Product used for unknown indication
     Dosage: 180 CAPSULES. 90 DAYS
     Route: 048
     Dates: start: 20240711
  2. DOFETILIDE [Suspect]
     Active Substance: DOFETILIDE
     Dosage: 30 DAYS,
     Route: 048
     Dates: start: 20240531

REACTIONS (2)
  - Syncope [Unknown]
  - Circulatory collapse [Unknown]
